FAERS Safety Report 22247631 (Version 1)
Quarter: 2023Q2

REPORT INFORMATION
  Report Type: Spontaneous
  Country: US (occurrence: US)
  Receive Date: 20230425
  Receipt Date: 20230425
  Transmission Date: 20230721
  Serious: No
  Sender: FDA-Public Use
  Company Number: US-TOPROL-2022000191

PATIENT
  Sex: Female

DRUGS (2)
  1. METOPROLOL SUCCINATE [Suspect]
     Active Substance: METOPROLOL SUCCINATE
     Indication: Hypertension
     Route: 065
  2. TOPROL XL [Suspect]
     Active Substance: METOPROLOL SUCCINATE
     Indication: Hypertension
     Dosage: SHE IS ON THE TOPROL XL 100MG.+#13;?SHE TAKES HALF TABLET IN THE MORNING AND HALF IN THE EVENING.
     Route: 065

REACTIONS (4)
  - Hypersensitivity [Unknown]
  - Heart rate abnormal [Unknown]
  - Hypertension [Unknown]
  - Inappropriate schedule of product administration [Unknown]
